FAERS Safety Report 5123795-0 (Version None)
Quarter: 2006Q4

REPORT INFORMATION
  Report Type: 
  Country: None (occurrence: None)
  Receive Date: 20061010
  Receipt Date: 20061002
  Transmission Date: 20070319
  Serious: Yes (Other)
  Sender: FDA-Public Use
  Company Number: US-AVENTIS-200618300US

PATIENT
  Sex: Female

DRUGS (6)
  1. LOVENOX [Suspect]
     Indication: THROMBOSIS
     Dates: start: 20060923, end: 20061002
  2. COUMADIN [Suspect]
     Dosage: DOSE: 5MG STAGGERED WITH 2.5MG
     Dates: start: 20060923, end: 20061002
  3. FUROSEMIDE [Concomitant]
     Dosage: DOSE: UNK
  4. LEVOXYL [Concomitant]
     Dosage: DOSE: UNK
  5. DILTIAZEM HCL [Concomitant]
     Dosage: DOSE: UNK
  6. LISINOPRIL [Concomitant]
     Dosage: DOSE: UNK

REACTIONS (2)
  - CONTUSION [None]
  - INTERNATIONAL NORMALISED RATIO INCREASED [None]
